FAERS Safety Report 12919847 (Version 1)
Quarter: 2016Q4

REPORT INFORMATION
  Report Type: Spontaneous
  Country: US (occurrence: US)
  Receive Date: 20161108
  Receipt Date: 20161108
  Transmission Date: 20170207
  Serious: No
  Sender: FDA-Public Use
  Company Number: US-ENDO PHARMACEUTICALS INC.-2015-004930

PATIENT
  Sex: Male
  Weight: 97.61 kg

DRUGS (3)
  1. PRIMIDONE. [Concomitant]
     Active Substance: PRIMIDONE
     Route: 065
     Dates: start: 1978
  2. IBUPROFEN TABLETS [Suspect]
     Active Substance: IBUPROFEN
     Indication: PAIN
     Route: 065
  3. DILANTIN [Suspect]
     Active Substance: PHENYTOIN
     Indication: PRODUCT USED FOR UNKNOWN INDICATION
     Route: 065
     Dates: start: 1978

REACTIONS (3)
  - Mouth ulceration [Recovered/Resolved]
  - Mouth haemorrhage [Recovered/Resolved]
  - Aphthous ulcer [Recovered/Resolved]
